FAERS Safety Report 7767054-6 (Version None)
Quarter: 2011Q3

REPORT INFORMATION
  Report Type: 
  Country: None (occurrence: None)
  Receive Date: 20110922
  Receipt Date: 20101208
  Transmission Date: 20111222
  Serious: No
  Sender: FDA-Public Use
  Company Number: US-ASTRAZENECA-2010SE58428

PATIENT
  Age: 16 Year
  Sex: Male

DRUGS (2)
  1. TRILEPTIL [Concomitant]
  2. SEROQUEL [Suspect]
     Indication: ABNORMAL BEHAVIOUR
     Route: 048
     Dates: start: 20101101

REACTIONS (2)
  - PANIC ATTACK [None]
  - HEART RATE INCREASED [None]
